FAERS Safety Report 8843154 (Version 3)
Quarter: 2012Q4

REPORT INFORMATION
  Report Type: 
  Country: US (occurrence: US)
  Receive Date: 20121016
  Receipt Date: 20121102
  Transmission Date: 20130627
  Serious: No
  Sender: FDA-Public Use
  Company Number: US-VERTEX PHARMACEUTICAL INC.-2012-022304

PATIENT
  Age: 46 Year
  Sex: Male
  Weight: 65.8 kg

DRUGS (5)
  1. INCIVEK [Suspect]
     Indication: HEPATITIS C
     Dosage: 750 mg, tid
     Route: 048
     Dates: start: 20120918
  2. RIBAVIRIN [Suspect]
     Indication: HEPATITIS C
     Dosage: 600 mg, bid
     Route: 048
     Dates: start: 20120918
  3. PEGASYS [Suspect]
     Indication: HEPATITIS C
     Dosage: 180 ?g, qw
     Route: 058
     Dates: start: 20120918
  4. BENADRYL                           /00000402/ [Concomitant]
     Indication: PRURITUS
     Dosage: 25- 50 mg, prn
     Route: 048
  5. ALBUTEROL SULFATE [Concomitant]
     Indication: BRONCHITIS
     Dosage: UNK, qd

REACTIONS (16)
  - Arthritis [Not Recovered/Not Resolved]
  - Insomnia [Not Recovered/Not Resolved]
  - Injection site bruising [None]
  - Drug dose omission [Recovered/Resolved]
  - Oral herpes [Not Recovered/Not Resolved]
  - Night sweats [Not Recovered/Not Resolved]
  - Lethargy [Not Recovered/Not Resolved]
  - Fatigue [Unknown]
  - Rash pruritic [Not Recovered/Not Resolved]
  - Frequent bowel movements [Not Recovered/Not Resolved]
  - Anorectal discomfort [Not Recovered/Not Resolved]
  - Proctalgia [Not Recovered/Not Resolved]
  - Vomiting [Recovered/Resolved]
  - Anal pruritus [Not Recovered/Not Resolved]
  - Pruritus [Not Recovered/Not Resolved]
  - Nausea [Not Recovered/Not Resolved]
